FAERS Safety Report 9444107 (Version 1)
Quarter: 2013Q3

REPORT INFORMATION
  Report Type: Spontaneous
  Country: US (occurrence: None)
  Receive Date: 20130806
  Receipt Date: 20130806
  Transmission Date: 20140515
  Serious: Yes (Disabling)
  Sender: FDA-Public Use
  Company Number: None

PATIENT
  Age: 69 None
  Sex: 0

DRUGS (12)
  1. ZICAM [Suspect]
  2. ZICAM [Suspect]
     Indication: NASOPHARYNGITIS
     Dosage: ONE SQUIRE PER NOSTIRIL 2 DAY IN NOSE.
     Route: 045
  3. ZICAM [Suspect]
     Indication: PROPHYLAXIS
     Dosage: ONE SQUIRE PER NOSTIRIL 2 DAY IN NOSE.
     Route: 045
  4. DALMANE [Concomitant]
  5. XAMEX [Concomitant]
  6. BABY ASPIRIN [Concomitant]
  7. GLUCOSAMINE [Concomitant]
  8. DRIED RASPBERRY [Concomitant]
  9. MILK WEED [Concomitant]
  10. MULTIVITAMIN [Concomitant]
  11. B SUPPLEMENT [Concomitant]
  12. D SUPPLEMENT [Concomitant]

REACTIONS (4)
  - Headache [None]
  - Ageusia [None]
  - Anosmia [None]
  - Nerve injury [None]
